FAERS Safety Report 8814026 (Version 2)
Quarter: 2012Q4

REPORT INFORMATION
  Report Type: 
  Country: US (occurrence: US)
  Receive Date: 20120928
  Receipt Date: 20121108
  Transmission Date: 20130627
  Serious: No
  Sender: FDA-Public Use
  Company Number: US-PFIZER INC-2012240780

PATIENT
  Age: 61 Year
  Sex: Male
  Weight: 47.62 kg

DRUGS (5)
  1. CHANTIX [Suspect]
     Indication: SMOKING CESSATION THERAPY
     Dosage: 0.5 mg, 1x/day
     Route: 048
     Dates: start: 2011, end: 2011
  2. HYDROCODONE [Concomitant]
     Dosage: UNK
  3. NAPROSYN [Concomitant]
     Dosage: UNK
  4. GABAPENTIN [Concomitant]
     Dosage: UNK
  5. COL-RITE [Concomitant]
     Dosage: UNK

REACTIONS (1)
  - Weight decreased [Unknown]
